FAERS Safety Report 8320040-X (Version None)
Quarter: 2012Q2

REPORT INFORMATION
  Report Type: 
  Country: None (occurrence: None)
  Receive Date: 20120427
  Receipt Date: 20120419
  Transmission Date: 20120825
  Serious: Yes (Hospitalization)
  Sender: FDA-Public Use
  Company Number: IT-TEVA-334709USA

PATIENT
  Sex: Male

DRUGS (4)
  1. TREANDA [Suspect]
     Indication: NON-HODGKIN'S LYMPHOMA
     Route: 042
     Dates: start: 20120328, end: 20120329
  2. DARBEPOETIN ALFA [Concomitant]
     Dates: start: 20120227
  3. LEVOFLOXACIN [Concomitant]
     Dates: start: 20120327
  4. RITUXIMAB [Suspect]
     Indication: NON-HODGKIN'S LYMPHOMA
     Route: 042
     Dates: start: 20120328, end: 20120329

REACTIONS (5)
  - TROPONIN INCREASED [None]
  - EJECTION FRACTION DECREASED [None]
  - DYSPNOEA [None]
  - MYOCARDITIS [None]
  - FATIGUE [None]
